FAERS Safety Report 17831293 (Version 6)
Quarter: 2025Q4

REPORT INFORMATION
  Report Type: Spontaneous
  Country: US (occurrence: US)
  Receive Date: 20200527
  Receipt Date: 20251119
  Transmission Date: 20260117
  Serious: Yes (Congenital Anomaly, Other)
  Sender: PURDUE
  Company Number: US-NAPPMUNDI-USA-2020-0151826

PATIENT
  Sex: Female
  Weight: 48.9 kg

DRUGS (32)
  1. OXYCONTIN [Suspect]
     Active Substance: OXYCODONE HYDROCHLORIDE
     Indication: Arthritis
     Dosage: 80 MG, TID
     Route: 048
  2. OXYCONTIN [Suspect]
     Active Substance: OXYCODONE HYDROCHLORIDE
     Indication: Pain
     Dosage: 60 MG, TID
     Route: 048
  3. OXYCONTIN [Suspect]
     Active Substance: OXYCODONE HYDROCHLORIDE
     Dosage: 20 MG, TID
     Route: 048
     Dates: end: 201901
  4. OXYCONTIN [Suspect]
     Active Substance: OXYCODONE HYDROCHLORIDE
     Dosage: 3 MILLIGRAM
     Route: 048
     Dates: start: 2006, end: 2018
  5. OXYCODONE HYDROCHLORIDE [Suspect]
     Active Substance: OXYCODONE HYDROCHLORIDE
     Indication: Breakthrough pain
     Dosage: 30 MG, TID
     Route: 048
     Dates: end: 201901
  6. OXYCODONE HYDROCHLORIDE [Suspect]
     Active Substance: OXYCODONE HYDROCHLORIDE
     Indication: Arthritis
     Dosage: 5 MILLIGRAM, QID (1 TABLET)
     Route: 048
  7. OXYCODONE HYDROCHLORIDE [Suspect]
     Active Substance: OXYCODONE HYDROCHLORIDE
     Indication: Breakthrough pain
     Dosage: 30 MG, Q4- 6H PRN
     Route: 048
  8. OXYCODONE HYDROCHLORIDE [Suspect]
     Active Substance: OXYCODONE HYDROCHLORIDE
     Dosage: 10 MG, Q6H PRN
     Route: 048
  9. OXYCODONE HYDROCHLORIDE [Suspect]
     Active Substance: OXYCODONE HYDROCHLORIDE
     Dosage: 5 MG, UNKNOWN
     Route: 048
  10. OXYCODONE HYDROCHLORIDE [Suspect]
     Active Substance: OXYCODONE HYDROCHLORIDE
     Indication: Arthritis
     Dosage: 60 MG, UNK
     Route: 048
     Dates: start: 2007, end: 2018
  11. OXYCODONE HYDROCHLORIDE [Suspect]
     Active Substance: OXYCODONE HYDROCHLORIDE
     Indication: Pain
     Dosage: 80 MG, UNK
     Route: 048
     Dates: start: 2007, end: 2018
  12. OXYCODONE HYDROCHLORIDE [Suspect]
     Active Substance: OXYCODONE HYDROCHLORIDE
     Dosage: 40 MG, BID
     Route: 048
     Dates: start: 2007, end: 2018
  13. OXYCODONE HYDROCHLORIDE [Suspect]
     Active Substance: OXYCODONE HYDROCHLORIDE
     Dosage: 10 MG, Q12H
     Route: 048
     Dates: start: 2007, end: 2018
  14. OXYCODONE HYDROCHLORIDE [Suspect]
     Active Substance: OXYCODONE HYDROCHLORIDE
     Dosage: 20 MILLIGRAM, Q8H PRN (1 TABLET)
     Route: 048
  15. OXYCODONE HYDROCHLORIDE [Suspect]
     Active Substance: OXYCODONE HYDROCHLORIDE
     Dosage: 10 MILLIGRAM, Q8H PRN (1 TABLET)
     Route: 048
  16. DILAUDID [Suspect]
     Active Substance: HYDROMORPHONE HYDROCHLORIDE
     Indication: Breakthrough pain
     Dosage: UNKNOWN
     Route: 048
  17. TRAMADOL [Suspect]
     Active Substance: TRAMADOL
     Indication: Breakthrough pain
     Dosage: 50 MG, UNKNOWN
     Route: 048
  18. TRAMADOL [Suspect]
     Active Substance: TRAMADOL
     Dosage: 50 MILLIGRAM, Q6H PRN (2 TABLET)
     Route: 048
  19. TRAMADOL [Suspect]
     Active Substance: TRAMADOL
     Dosage: 50 MILLIGRAM, Q4H PRN (1 TABLET)
     Route: 048
  20. OXYCODONE [Suspect]
     Active Substance: OXYCODONE
     Indication: Breakthrough pain
     Dosage: UNKNOWN
     Route: 048
  21. OXYCODONE HYDROCHLORIDE [Suspect]
     Active Substance: OXYCODONE HYDROCHLORIDE
     Indication: Breakthrough pain
     Dosage: 15 MG, Q4- 6H PRN
     Route: 065
  22. ACETAMINOPHEN\OXYCODONE HYDROCHLORIDE [Suspect]
     Active Substance: ACETAMINOPHEN\OXYCODONE HYDROCHLORIDE
     Indication: Breakthrough pain
     Dosage: UNKNOWN
     Route: 048
  23. HYDROCODONE BITARTRATE AND ACETAMINOPHEN [Suspect]
     Active Substance: ACETAMINOPHEN\HYDROCODONE BITARTRATE
     Indication: Breakthrough pain
     Dosage: 7.5-325 MG
     Route: 048
  24. VICODIN [Suspect]
     Active Substance: ACETAMINOPHEN\HYDROCODONE BITARTRATE
     Indication: Breakthrough pain
     Dosage: UNKNOWN
     Route: 065
  25. OXYCODONE [Suspect]
     Active Substance: OXYCODONE
     Indication: Product used for unknown indication
     Dosage: UNK
     Route: 065
  26. ACETAMINOPHEN\OXYCODONE HYDROCHLORIDE\OXYCODONE TEREPHTHALATE [Suspect]
     Active Substance: ACETAMINOPHEN\OXYCODONE HYDROCHLORIDE\OXYCODONE TEREPHTHALATE
     Indication: Breakthrough pain
     Dosage: 10-325 MG, QID PRN
     Route: 048
  27. DULOXETINE [Concomitant]
     Active Substance: DULOXETINE
     Indication: Depression
     Dosage: 90 MG, UNKNOWN
     Route: 065
  28. BUSPIRONE [Concomitant]
     Active Substance: BUSPIRONE HYDROCHLORIDE
     Indication: Anxiety
     Dosage: 30 MG, UNKNOWN
     Route: 065
  29. LISINOPRIL [Concomitant]
     Active Substance: LISINOPRIL
     Indication: Hypertension
     Dosage: 20 MG, UNKNOWN
     Route: 065
  30. ESTRADIOL [Concomitant]
     Active Substance: ESTRADIOL
     Indication: Hormone replacement therapy
     Dosage: 1 MG, UNKNOWN
     Route: 065
  31. CLONAZEPAM [Concomitant]
     Active Substance: CLONAZEPAM
     Indication: Sleep disorder
     Dosage: 2 MG, UNKNOWN
     Route: 065
  32. CLONAZEPAM [Concomitant]
     Active Substance: CLONAZEPAM
     Indication: Stress

REACTIONS (17)
  - Pancreatic disorder [Not Recovered/Not Resolved]
  - Functional gastrointestinal disorder [Unknown]
  - Weight decreased [Not Recovered/Not Resolved]
  - Congenital anomaly [Unknown]
  - Drug abuse [Unknown]
  - Drug dependence [Recovered/Resolved]
  - Gastrointestinal disorder [Not Recovered/Not Resolved]
  - Dyspepsia [Not Recovered/Not Resolved]
  - Off label use [Recovered/Resolved]
  - Abdominal discomfort [Not Recovered/Not Resolved]
  - Emotional distress [Unknown]
  - Illness [Unknown]
  - Pain [Unknown]
  - Influenza [Unknown]
  - Injury [Unknown]
  - Nightmare [Unknown]
  - Mental disorder [Unknown]

NARRATIVE: CASE EVENT DATE: 20070101
